FAERS Safety Report 23129011 (Version 1)
Quarter: 2023Q4

REPORT INFORMATION
  Report Type: Spontaneous
  Country: US (occurrence: None)
  Receive Date: 20231030
  Receipt Date: 20231030
  Transmission Date: 20240110
  Serious: No
  Sender: FDA-Public Use
  Company Number: None

PATIENT

DRUGS (1)
  1. ATROPINE [Suspect]
     Active Substance: ATROPINE

REACTIONS (6)
  - Product packaging confusion [None]
  - Inappropriate schedule of product administration [None]
  - Product communication issue [None]
  - Product availability issue [None]
  - Product outer packaging issue [None]
  - Circumstance or information capable of leading to medication error [None]
